FAERS Safety Report 15339929 (Version 3)
Quarter: 2018Q4

REPORT INFORMATION
  Report Type: Report from Study
  Country: US (occurrence: US)
  Receive Date: 20180831
  Receipt Date: 20181211
  Transmission Date: 20190204
  Serious: Yes (Other)
  Sender: FDA-Public Use
  Company Number: US-TEVA-2018-US-948838

PATIENT
  Age: 23 Year
  Sex: Female

DRUGS (1)
  1. CLARAVIS [Suspect]
     Active Substance: ISOTRETINOIN
     Dosage: 100 MILLIGRAM DAILY;
     Route: 065
     Dates: start: 20180326, end: 20180821

REACTIONS (2)
  - Abortion induced [Unknown]
  - Unintended pregnancy [Unknown]

NARRATIVE: CASE EVENT DATE: 20180913
